FAERS Safety Report 13668879 (Version 1)
Quarter: 2017Q2

REPORT INFORMATION
  Report Type: Spontaneous
  Country: US (occurrence: US)
  Receive Date: 20170620
  Receipt Date: 20170620
  Transmission Date: 20170830
  Serious: Yes (Disabling, Other)
  Sender: FDA-Public Use
  Company Number: None

PATIENT
  Age: 80 Year
  Sex: Female
  Weight: 17.25 kg

DRUGS (5)
  1. LEVAQUIN [Suspect]
     Active Substance: LEVOFLOXACIN
     Indication: SINUSITIS
     Dosage: 1 PILL, MOUTH
     Route: 048
     Dates: start: 20170120, end: 20170126
  2. LEVATHROID [Concomitant]
  3. OCUVITE [Concomitant]
     Active Substance: VITAMINS
  4. CRESTOR [Concomitant]
     Active Substance: ROSUVASTATIN CALCIUM
  5. VIT. 1 A DAY [Concomitant]

REACTIONS (6)
  - Fatigue [None]
  - Suicidal ideation [None]
  - Arthralgia [None]
  - Myalgia [None]
  - Abasia [None]
  - Loss of personal independence in daily activities [None]

NARRATIVE: CASE EVENT DATE: 20170120
